FAERS Safety Report 7611371-7 (Version None)
Quarter: 2011Q3

REPORT INFORMATION
  Report Type: 
  Country: None (occurrence: None)
  Receive Date: 20110715
  Receipt Date: 20110615
  Transmission Date: 20111222
  Serious: Yes (Other)
  Sender: FDA-Public Use
  Company Number: US-BAYER-2011-052688

PATIENT
  Sex: Female

DRUGS (2)
  1. MOTRIN [Suspect]
  2. NAPROXEN SODIUM [Suspect]

REACTIONS (1)
  - HYPERSENSITIVITY [None]
